FAERS Safety Report 7476072-7 (Version None)
Quarter: 2011Q2

REPORT INFORMATION
  Report Type: 
  Country: None (occurrence: None)
  Receive Date: 20110512
  Receipt Date: 20110505
  Transmission Date: 20111010
  Serious: Yes (Other)
  Sender: FDA-Public Use
  Company Number: US-AMGEN-USASP2011023611

PATIENT
  Sex: Male

DRUGS (1)
  1. SENSIPAR [Suspect]
     Indication: DIALYSIS
     Dates: start: 20110401

REACTIONS (2)
  - DYSPHAGIA [None]
  - RADIATION OESOPHAGITIS [None]
